FAERS Safety Report 9280722 (Version 2)
Quarter: 2013Q2

REPORT INFORMATION
  Report Type: Spontaneous
  Country: US (occurrence: US)
  Receive Date: 20130509
  Receipt Date: 20130606
  Transmission Date: 20140414
  Serious: No
  Sender: FDA-Public Use
  Company Number: US-PFIZER INC-2013140115

PATIENT
  Age: 48 Year
  Sex: Male
  Weight: 149.66 kg

DRUGS (18)
  1. GENOTROPIN MQ [Suspect]
     Indication: GROWTH HORMONE DEFICIENCY
     Dosage: INJECT 0.4 MG, 6 DAYS A WEEK (SKIP SUNDAYS)
     Route: 058
  2. TIZANIDINE [Concomitant]
     Dosage: 2 MG, UNK
  3. TRICOR [Concomitant]
     Dosage: 48 MG, UNK
  4. LYRICA [Concomitant]
     Dosage: 100 MG, UNK
  5. NIASPAN [Concomitant]
     Dosage: 500 MG, UNK
  6. GLIMEPIRIDE [Concomitant]
     Dosage: 1 MG, UNK
  7. VICODIN ES [Concomitant]
     Dosage: 7.5-750, UNK
  8. PROZAC [Concomitant]
     Dosage: 10 MG, UNK
  9. XANAX [Concomitant]
     Dosage: 0.25 MG, UNK
  10. TESTOSTERONE [Concomitant]
     Dosage: 100 MG/ML, UNK
  11. LEVOTHYROXINE [Concomitant]
     Dosage: 25 UG, UNK
  12. FISH OIL [Concomitant]
     Dosage: UNK
  13. MAGNESIUM [Concomitant]
     Dosage: 300 MG, UNK
  14. VITAMIN B [Concomitant]
     Dosage: 50, UNK
  15. B COMPLEX [Concomitant]
     Dosage: UNK
  16. VITAMIN D [Concomitant]
     Dosage: 1000 IU, UNK
  17. CALCIUM [Concomitant]
     Dosage: 500, UNK
  18. MULTIVIT [Concomitant]
     Dosage: UNK

REACTIONS (1)
  - Dizziness [Unknown]
